FAERS Safety Report 9926362 (Version 1)
Quarter: 2014Q1

REPORT INFORMATION
  Report Type: Spontaneous
  Country: US (occurrence: US)
  Receive Date: 20140226
  Receipt Date: 20140226
  Transmission Date: 20141002
  Serious: No
  Sender: FDA-Public Use
  Company Number: US-AMGEN-USASP2013085290

PATIENT
  Age: 61 Year
  Sex: Female
  Weight: 60.77 kg

DRUGS (15)
  1. ENBREL [Suspect]
     Indication: PRODUCT USED FOR UNKNOWN INDICATION
     Dosage: 50 MG, QWK
     Route: 058
  2. CINNAMON                           /01647501/ [Concomitant]
     Dosage: 500 MG, UNK
  3. FOLIC ACID [Concomitant]
     Dosage: 20 MG, UNK
  4. MELOXICAM [Concomitant]
     Dosage: 7.5 MG, UNK
  5. KLONOPIN [Concomitant]
     Dosage: 1 MG, UNK
  6. HYDROCHLOROTH [Concomitant]
     Dosage: 12.5 MG, UNK
  7. TRAMADOL HCL [Concomitant]
     Dosage: 50 MG, UNK
  8. LOSARTAN POTASSIUM [Concomitant]
     Dosage: 25 MG, UNK
  9. CLONAZEPAM [Concomitant]
     Dosage: 2 MG, UNK
  10. TRIMETHOPRIM [Concomitant]
     Dosage: 100 MG, UNK
  11. CYCLOBENZAPRINE [Concomitant]
     Dosage: 5 MG, UNK
  12. CRANBERRY                          /01512301/ [Concomitant]
     Dosage: UNK
  13. VERAPAMIL [Concomitant]
     Dosage: 100 MG, UNK
  14. FLUOXETINE [Concomitant]
     Dosage: 10 MG, UNK
  15. VITAMIN D3 [Concomitant]
     Dosage: 1000 UNIT, UNK

REACTIONS (4)
  - Urinary tract infection [Unknown]
  - Back pain [Unknown]
  - Headache [Unknown]
  - Alopecia [Unknown]
